FAERS Safety Report 19595278 (Version 2)
Quarter: 2024Q3

REPORT INFORMATION
  Report Type: Report from Study
  Country: US (occurrence: US)
  Receive Date: 20210722
  Receipt Date: 20240919
  Transmission Date: 20241017
  Serious: Yes (Death, Other)
  Sender: KYOWA
  Company Number: US-KYOWAKIRIN-2021BKK012619

PATIENT

DRUGS (2)
  1. CRYSVITA [Suspect]
     Active Substance: BUROSUMAB-TWZA
     Indication: Hereditary hypophosphataemic rickets
     Dosage: 70 MG, EVERY 4 WEEKS (60MG UNDER THE SKIN EVERY 4 WEEKS ALONG WITH 10MG VIAL FOR A TOTAL DOSE OF 70M
     Route: 058
     Dates: start: 201812
  2. CRYSVITA [Suspect]
     Active Substance: BUROSUMAB-TWZA
     Indication: Hereditary hypophosphataemic rickets
     Dosage: 70 MG, EVERY 4 WEEKS (60MG UNDER THE SKIN EVERY 4 WEEKS ALONG WITH 10MG VIAL FOR A TOTAL DOSE OF 70M
     Route: 058
     Dates: start: 201812

REACTIONS (2)
  - Death [Fatal]
  - Muscle spasms [Unknown]

NARRATIVE: CASE EVENT DATE: 20240905
